FAERS Safety Report 10934674 (Version 3)
Quarter: 2015Q2

REPORT INFORMATION
  Report Type: Spontaneous
  Country: US (occurrence: US)
  Receive Date: 20150320
  Receipt Date: 20150421
  Transmission Date: 20150821
  Serious: Yes (Other)
  Sender: FDA-Public Use
  Company Number: US-PFIZER INC-2015096231

PATIENT
  Age: 64 Year
  Sex: Female

DRUGS (2)
  1. CELEBREX [Suspect]
     Active Substance: CELECOXIB
     Dosage: UNK
  2. TAMOXIFEN CITRATE. [Suspect]
     Active Substance: TAMOXIFEN CITRATE
     Dosage: UNK

REACTIONS (6)
  - Pulmonary fibrosis [Unknown]
  - Disease recurrence [Unknown]
  - Musculoskeletal discomfort [Unknown]
  - Chest pain [Unknown]
  - Breast cancer [Unknown]
  - Post procedural oedema [Unknown]
